FAERS Safety Report 5260945-X (Version None)
Quarter: 2007Q1

REPORT INFORMATION
  Report Type: 
  Country: None (occurrence: None)
  Receive Date: 20070309
  Receipt Date: 20070228
  Transmission Date: 20070707
  Serious: Yes (Death)
  Sender: FDA-Public Use
  Company Number: FR-SHR-FR-2007-007714

PATIENT
  Sex: Male

DRUGS (1)
  1. SOTALOL HYDROCHLORIDE [Suspect]
     Indication: TACHYARRHYTHMIA
     Dosage: 80 MG, 1X/DAY
     Route: 048

REACTIONS (1)
  - DEATH [None]
